FAERS Safety Report 8031770-1 (Version None)
Quarter: 2012Q1

REPORT INFORMATION
  Report Type: 
  Country: None (occurrence: None)
  Receive Date: 20120109
  Receipt Date: 20111229
  Transmission Date: 20120608
  Serious: Yes (Other)
  Sender: FDA-Public Use
  Company Number: US-PFIZER INC-2011316985

PATIENT
  Sex: Male
  Weight: 109 kg

DRUGS (10)
  1. PROPRANOLOL HCL [Suspect]
     Indication: MIGRAINE
     Dosage: 80 MG, 2X/DAY
     Route: 048
     Dates: start: 20100101
  2. INDERAL LA [Suspect]
     Indication: MIGRAINE
     Dosage: 80 MG, 1X/DAY
     Route: 048
     Dates: start: 19780101
  3. PROPRANOLOL HCL [Suspect]
     Indication: HYPERTENSION
  4. LASIX [Concomitant]
     Indication: FLUID RETENTION
  5. METFORMIN [Concomitant]
     Indication: GLUCOSE TOLERANCE IMPAIRED
     Dosage: UNK
  6. INDERAL LA [Suspect]
     Dosage: 120 MG, 1X/DAY
     Dates: end: 20100101
  7. POTASSIUM [Concomitant]
     Indication: FLUID RETENTION
  8. INDERAL LA [Suspect]
     Dosage: 80 MG, 2X/DAY
  9. ZANTAC [Concomitant]
     Indication: DYSPEPSIA
  10. XANAX [Concomitant]
     Indication: ANXIETY

REACTIONS (4)
  - PENILE CURVATURE [None]
  - LACERATION [None]
  - ASTHENIA [None]
  - PAINFUL ERECTION [None]
